FAERS Safety Report 9291228 (Version 4)
Quarter: 2014Q2

REPORT INFORMATION
  Report Type: Spontaneous
  Country: US (occurrence: US)
  Receive Date: 20130515
  Receipt Date: 20140627
  Transmission Date: 20141212
  Serious: No
  Sender: FDA-Public Use
  Company Number: US-009507513-1305USA008471

PATIENT
  Sex: Male
  Weight: 79.82 kg

DRUGS (2)
  1. PROPECIA [Suspect]
     Indication: ANDROGENETIC ALOPECIA
     Dosage: 1 MG, QD
     Route: 048
     Dates: start: 2004
  2. PROPECIA [Suspect]
     Dosage: 1 MG, QD
     Route: 048
     Dates: start: 20051208, end: 20080312

REACTIONS (34)
  - Sex hormone binding globulin decreased [Not Recovered/Not Resolved]
  - Hypogonadism [Not Recovered/Not Resolved]
  - Fatigue [Not Recovered/Not Resolved]
  - Seborrhoeic dermatitis [Unknown]
  - Epididymal cyst [Not Recovered/Not Resolved]
  - Inappropriate schedule of drug administration [Unknown]
  - Spermatocele [Unknown]
  - Cryotherapy [Unknown]
  - Anogenital warts [Unknown]
  - Varicocele [Unknown]
  - Sinus disorder [Unknown]
  - Liver disorder [Unknown]
  - Ear infection [Unknown]
  - Oropharyngeal pain [Unknown]
  - Blood testosterone decreased [Not Recovered/Not Resolved]
  - Sexual dysfunction [Not Recovered/Not Resolved]
  - Erectile dysfunction [Not Recovered/Not Resolved]
  - Testicular pain [Not Recovered/Not Resolved]
  - Libido decreased [Not Recovered/Not Resolved]
  - Semen analysis abnormal [Not Recovered/Not Resolved]
  - Semen volume decreased [Not Recovered/Not Resolved]
  - Pruritus [Unknown]
  - Blood pressure increased [Unknown]
  - Weight increased [Unknown]
  - Infertility male [Unknown]
  - Spermatozoa progressive motility decreased [Unknown]
  - Anogenital warts [Unknown]
  - Back injury [Unknown]
  - Stress [Unknown]
  - Adverse drug reaction [Unknown]
  - Palpitations [Recovering/Resolving]
  - Snoring [Unknown]
  - Impaired fasting glucose [Unknown]
  - Depression [Unknown]
